FAERS Safety Report 15526936 (Version 1)
Quarter: 2018Q4

REPORT INFORMATION
  Report Type: Spontaneous
  Country: US (occurrence: US)
  Receive Date: 20181018
  Receipt Date: 20181018
  Transmission Date: 20190205
  Serious: Yes (Other)
  Sender: FDA-Public Use
  Company Number: US-SA-2018SA286310

PATIENT
  Age: 66 Year
  Sex: Female
  Weight: 97 kg

DRUGS (23)
  1. LEVOTHYROXINE. [Concomitant]
     Active Substance: LEVOTHYROXINE
     Dosage: UNK UNK, UNK
  2. ADRENALINA [EPINEPHRINE BITARTRATE] [Concomitant]
     Dosage: 0.3 MG, PRN ONCE
     Route: 030
     Dates: start: 20130612, end: 20130612
  3. HEPARIN FLUSH [Concomitant]
     Active Substance: HEPARIN SODIUM
     Dosage: 500 U, PRN
     Dates: start: 20130612, end: 20130612
  4. LOSARTAN. [Concomitant]
     Active Substance: LOSARTAN
     Dosage: UNK UNK, UNK
  5. LOVASTATIN. [Concomitant]
     Active Substance: LOVASTATIN
     Dosage: UNK UNK, UNK
  6. CYTOXAN [Concomitant]
     Active Substance: CYCLOPHOSPHAMIDE
     Dosage: UNK UNK, UNK
     Route: 042
  7. TRASTUZUMAB. [Concomitant]
     Active Substance: TRASTUZUMAB
     Dosage: 6 MG/KG, QD
     Route: 042
     Dates: start: 20130612, end: 20130612
  8. BENADRYL [Concomitant]
     Active Substance: DIPHENHYDRAMINE HYDROCHLORIDE
     Dosage: 25 MG, PRN MAY REPEAT ONE TIME IN 15 MINUTES IF SYMPTOMS ARE NOT SLOWING OR HALTING TO BLOCK THE ANT
     Route: 042
     Dates: start: 20130612, end: 20130612
  9. METFORMIN [Concomitant]
     Active Substance: METFORMIN HYDROCHLORIDE
     Dosage: UNK UNK, UNK
  10. DEXAMETHASONE. [Concomitant]
     Active Substance: DEXAMETHASONE
     Dosage: 10 MG, QD
     Route: 042
     Dates: start: 20130612, end: 20130612
  11. ONDANSETRON [Concomitant]
     Active Substance: ONDANSETRON
     Dosage: 16 MG, QD INJECT OVER 2-5 MINUTES
     Route: 042
     Dates: start: 20130612, end: 20130612
  12. LORAZEPAM. [Concomitant]
     Active Substance: LORAZEPAM
     Dosage: MAY REPEAT ONE TIME IN 30 MINUTES AND EVERY 4 HOURS PRN THEREAFTER
     Dates: start: 20130612, end: 20130612
  13. ATIVAN [Concomitant]
     Active Substance: LORAZEPAM
     Dosage: GIVE IF UNABLE TO TOLERATE ORAL FORMULATION. MAY REPEAT ONE TIME IN 30 MINUTES AND EVERY 4 HOURS PRN
     Route: 042
     Dates: start: 20130612, end: 20130612
  14. TAXOTERE [Suspect]
     Active Substance: DOCETAXEL
     Dosage: 155 MG, Q3W
     Route: 042
     Dates: start: 20130612, end: 20130612
  15. AMLODIPINE [Concomitant]
     Active Substance: AMLODIPINE BESYLATE
     Dosage: UNK UNK, UNK
  16. NEOSAR [Concomitant]
     Active Substance: CYCLOPHOSPHAMIDE
     Indication: CHEMOTHERAPY
     Dosage: UNK UNK, UNK
  17. SOLU-CORTEF [Concomitant]
     Active Substance: HYDROCORTISONE SODIUM SUCCINATE
     Dosage: 100 MG, PRN ONCE
     Route: 042
     Dates: start: 20130612, end: 20130612
  18. ATENOLOL. [Concomitant]
     Active Substance: ATENOLOL
     Dosage: UNK UNK, UNK
  19. ACETAMINOPHEN. [Concomitant]
     Active Substance: ACETAMINOPHEN
     Dosage: 650 MG, PRN EVERY 6 HOURS
     Route: 048
     Dates: start: 20130612, end: 20130612
  20. TAXOTERE [Suspect]
     Active Substance: DOCETAXEL
     Indication: BREAST CANCER
     Dosage: 155 MG, Q3W
     Route: 042
     Dates: start: 20130220, end: 20130220
  21. ALLOPURINOL. [Concomitant]
     Active Substance: ALLOPURINOL
     Dosage: UNK UNK, UNK
  22. SODIUM CHLORIDE. [Concomitant]
     Active Substance: SODIUM CHLORIDE
     Dosage: UNK UNK, QD
     Route: 042
     Dates: start: 20130612, end: 20130612
  23. PROVENTIL [SALBUTAMOL] [Concomitant]
     Dosage: UNK UNK, PRN
     Dates: start: 20130612, end: 20130612

REACTIONS (1)
  - Alopecia [Recovering/Resolving]

NARRATIVE: CASE EVENT DATE: 20130301
